FAERS Safety Report 7653043-9 (Version None)
Quarter: 2011Q3

REPORT INFORMATION
  Report Type: 
  Country: None (occurrence: None)
  Receive Date: 20110803
  Receipt Date: 20110727
  Transmission Date: 20111222
  Serious: Yes (Hospitalization)
  Sender: FDA-Public Use
  Company Number: PHHY2011NO67402

PATIENT
  Sex: Female

DRUGS (7)
  1. LORATADINE [Concomitant]
     Dosage: 10 MG, QD
     Route: 048
     Dates: end: 20110715
  2. ATACAND HCT [Concomitant]
     Dosage: 1 DF, QD
     Route: 048
  3. METFORMIN HCL [Suspect]
     Indication: TYPE 2 DIABETES MELLITUS
     Dosage: 500 MG, BID
     Route: 048
     Dates: end: 20110714
  4. SPIRONOLACTONE [Suspect]
     Dosage: 50 MG, QD
     Route: 048
     Dates: end: 20110715
  5. ZOPICLONE [Concomitant]
     Dosage: 1 DF, QD
     Route: 048
  6. ASPIRIN [Suspect]
     Dosage: 75 MG, QD
     Route: 048
  7. GLIMEPIRIDE [Concomitant]
     Dosage: 1 MG, QD
     Route: 048

REACTIONS (5)
  - DUODENAL ULCER [None]
  - NAUSEA [None]
  - OCCULT BLOOD [None]
  - DEHYDRATION [None]
  - VOMITING [None]
